FAERS Safety Report 4375120-0 (Version None)
Quarter: 2004Q2

REPORT INFORMATION
  Report Type: 
  Country: None (occurrence: None)
  Receive Date: 20040609
  Receipt Date: 20040604
  Transmission Date: 20050107
  Serious: Yes (Hospitalization)
  Sender: FDA-Public Use
  Company Number: GB-MERCK-0406GBR00042

PATIENT
  Age: 76 Year
  Sex: Female

DRUGS (2)
  1. ARICEPT [Concomitant]
     Indication: DEMENTIA
     Route: 048
     Dates: start: 20040301
  2. INVANZ [Suspect]
     Indication: URINARY TRACT INFECTION
     Route: 042
     Dates: start: 20040513, end: 20040515

REACTIONS (2)
  - CONFUSIONAL STATE [None]
  - HYPONATRAEMIA [None]
